FAERS Safety Report 23283228 (Version 2)
Quarter: 2023Q4

REPORT INFORMATION
  Report Type: Spontaneous
  Country: CA (occurrence: CA)
  Receive Date: 20231211
  Receipt Date: 20231221
  Transmission Date: 20240109
  Serious: Yes (Other)
  Sender: FDA-Public Use
  Company Number: CA-MYLANLABS-2023M1130798

PATIENT
  Age: 54 Year
  Sex: Female

DRUGS (2)
  1. DEPAKENE [Suspect]
     Active Substance: VALPROIC ACID
     Indication: Bipolar disorder
     Dosage: UNK
     Route: 065
  2. HUMIRA [Suspect]
     Active Substance: ADALIMUMAB
     Indication: Rheumatoid arthritis
     Dosage: UNK
     Route: 058

REACTIONS (2)
  - Interstitial lung disease [Recovered/Resolved]
  - Pancreatitis [Recovered/Resolved]
